FAERS Safety Report 8436102-2 (Version None)
Quarter: 2012Q2

REPORT INFORMATION
  Report Type: 
  Country: None (occurrence: None)
  Receive Date: 20120614
  Receipt Date: 20120612
  Transmission Date: 20120825
  Serious: No
  Sender: FDA-Public Use
  Company Number: PHEH2012US009362

PATIENT
  Sex: Female
  Weight: 63.492 kg

DRUGS (1)
  1. GILENYA [Suspect]
     Indication: MULTIPLE SCLEROSIS
     Dosage: 0.5 MG, QD
     Route: 048
     Dates: start: 20120426, end: 20120427

REACTIONS (4)
  - LETHARGY [None]
  - FEELING ABNORMAL [None]
  - HYPOTENSION [None]
  - INFLUENZA LIKE ILLNESS [None]
